FAERS Safety Report 6944441-7 (Version None)
Quarter: 2010Q3

REPORT INFORMATION
  Report Type: 
  Country: None (occurrence: None)
  Receive Date: 20100827
  Receipt Date: 20100817
  Transmission Date: 20110219
  Serious: Yes (Other)
  Sender: FDA-Public Use
  Company Number: JP-PFIZER INC-2010103214

PATIENT
  Age: 79 Year
  Sex: Female

DRUGS (7)
  1. LIPITOR [Suspect]
     Dosage: 5 MG, UNKNOWN/D
     Route: 048
  2. FAMOTIDINE [Concomitant]
     Dosage: UNK
  3. FLUITRAN [Concomitant]
     Dosage: UNK
  4. TAMBOCOR [Concomitant]
     Dosage: UNK
  5. PURSENNID [Concomitant]
     Dosage: UNK
  6. THYRADIN [Concomitant]
     Dosage: UNK
  7. AMLODIPINE [Concomitant]
     Dosage: UNK

REACTIONS (2)
  - ARTHRALGIA [None]
  - CHROMATURIA [None]
